FAERS Safety Report 4280664-6 (Version None)
Quarter: 2004Q1

REPORT INFORMATION
  Report Type: 
  Country: None (occurrence: None)
  Receive Date: 20040127
  Receipt Date: 20040115
  Transmission Date: 20041129
  Serious: Yes (Other)
  Sender: FDA-Public Use
  Company Number: ES-JNJFOC-20031204256

PATIENT
  Age: 5 Year
  Sex: Male

DRUGS (2)
  1. TOPIRAMATE [Suspect]
     Indication: CONVULSION
     Dosage: 50 MG, IN 1 DAY, ORAL; 25 MG, IN 1 DAY, ORAL; 75MG, IN 1 DAY, ORAL; 100 MG, IN 1 DAY, ORAL
     Route: 048
  2. VALPROATE SODIUM [Suspect]
     Indication: CONVULSION
     Dosage: 600 MG, IN 1 DAY; 300 MG IN 1 DAY; 400 MG IN 1 DAY; 450 MG IN 1 DAY, 500 MG IN 1 DAY

REACTIONS (18)
  - ANOREXIA [None]
  - APATHY [None]
  - ASTHENIA [None]
  - BLOOD IMMUNOGLOBULIN E INCREASED [None]
  - COMPLEX PARTIAL SEIZURES [None]
  - CONDITION AGGRAVATED [None]
  - CONFUSIONAL STATE [None]
  - DISEASE RECURRENCE [None]
  - DRUG INEFFECTIVE [None]
  - EOSINOPHILIA [None]
  - EPILEPSY [None]
  - FOOD ALLERGY [None]
  - HYPERAMMONAEMIA [None]
  - HYPOACUSIS [None]
  - HYPOTONIA [None]
  - SIMPLE PARTIAL SEIZURES [None]
  - SOMNOLENCE [None]
  - WEIGHT DECREASED [None]
